FAERS Safety Report 20457552 (Version 1)
Quarter: 2022Q1

REPORT INFORMATION
  Report Type: Report from Study
  Country: BR (occurrence: BR)
  Receive Date: 20220210
  Receipt Date: 20220210
  Transmission Date: 20220423
  Serious: Yes (Other)
  Sender: FDA-Public Use
  Company Number: BR-JNJFOC-20210925310

PATIENT
  Age: 54 Year
  Sex: Female
  Weight: 59 kg

DRUGS (6)
  1. INFLIXIMAB [Suspect]
     Active Substance: INFLIXIMAB
     Indication: Colitis ulcerative
     Dosage: WEEKS 0, 2 AND 6, AND THEN EVERY 8 WEEKS, 300 (MG MILLIGRAM(S) )
     Route: 042
     Dates: start: 20210709
  2. INFLIXIMAB [Suspect]
     Active Substance: INFLIXIMAB
     Indication: Colitis
  3. REMICADE [Suspect]
     Active Substance: INFLIXIMAB
     Indication: Colitis ulcerative
     Dosage: WEEKS 0, 2 AND 6, AND THEN EVERY 8 WEEKS, 300 (MG MILLIGRAM(S) )
     Route: 042
     Dates: start: 20210709
  4. REMICADE [Suspect]
     Active Substance: INFLIXIMAB
     Indication: Colitis
  5. CIMETIDINE [Concomitant]
     Active Substance: CIMETIDINE
     Route: 065
  6. CORTISONE [Concomitant]
     Active Substance: CORTISONE
     Route: 065

REACTIONS (4)
  - Hypothermia [Unknown]
  - Vomiting [Unknown]
  - Hypersensitivity [Unknown]
  - Infusion related reaction [Unknown]

NARRATIVE: CASE EVENT DATE: 20210709
